FAERS Safety Report 9403779 (Version 1)
Quarter: 2013Q3

REPORT INFORMATION
  Report Type: Spontaneous
  Country: US (occurrence: None)
  Receive Date: 20130716
  Receipt Date: 20130716
  Transmission Date: 20140515
  Serious: Yes (Death)
  Sender: FDA-Public Use
  Company Number: None

PATIENT
  Age: 70 Year
  Sex: Male
  Weight: 76.66 kg

DRUGS (10)
  1. SYMBICORT [Suspect]
     Indication: CHRONIC OBSTRUCTIVE PULMONARY DISEASE
     Dosage: 2 PUFFS EACH TIME (?)  2-4 TIMES DAILY  PUFF INTO MOUTH
     Dates: start: 201207, end: 201307
  2. ALBUTEROL SULFATE [Concomitant]
  3. TUDORZA PRESSAIR [Concomitant]
  4. SPIRIVA HANDIHALER [Concomitant]
  5. IRBESARTAN HCTZ 300/12.5MG [Concomitant]
  6. CRESTAR [Concomitant]
  7. CLOPIDOGREL BISULFATE [Concomitant]
  8. BYSTOLIC [Concomitant]
  9. NYSTATIN [Concomitant]
  10. BABY ASPIRIN [Concomitant]

REACTIONS (3)
  - Candida infection [None]
  - Dyspnoea [None]
  - Cough [None]
